FAERS Safety Report 9554593 (Version 1)
Quarter: 2013Q3

REPORT INFORMATION
  Report Type: Spontaneous
  Country: IT (occurrence: IT)
  Receive Date: 20130925
  Receipt Date: 20130925
  Transmission Date: 20140515
  Serious: Yes (Other)
  Sender: FDA-Public Use
  Company Number: IT-BAXTER-2013BAX037078

PATIENT
  Age: 31 Year
  Sex: Female
  Weight: 63 kg

DRUGS (3)
  1. ENDOXAN BAXTER [Suspect]
     Indication: INVASIVE DUCTAL BREAST CARCINOMA
     Route: 042
     Dates: start: 20130726, end: 20130910
  2. FARMORUBICINA [Suspect]
     Indication: INVASIVE DUCTAL BREAST CARCINOMA
     Route: 042
     Dates: start: 20130726, end: 20130910
  3. FLUOROURACILE [Suspect]
     Indication: INVASIVE DUCTAL BREAST CARCINOMA
     Route: 042
     Dates: start: 20130726, end: 20130910

REACTIONS (4)
  - Anaemia [Recovered/Resolved]
  - Headache [Recovered/Resolved]
  - Leukopenia [Recovered/Resolved]
  - Neutropenia [Recovered/Resolved]
